FAERS Safety Report 4333157-1 (Version None)
Quarter: 2004Q2

REPORT INFORMATION
  Report Type: 
  Country: None (occurrence: None)
  Receive Date: 20040405
  Receipt Date: 20040405
  Transmission Date: 20050107
  Serious: Yes (Other)
  Sender: FDA-Public Use
  Company Number: None

PATIENT
  Sex: Female
  Weight: 49.8957 kg

DRUGS (4)
  1. HYDROCODONE BITARTRATE + ACETAMINOPHEN [Suspect]
     Indication: BREAST DISORDER
     Dosage: 1 OR 2 TABS EVERY 4 HO ORAL
     Route: 048
     Dates: start: 20040227, end: 20040324
  2. HYDROCODONE BITARTRATE + ACETAMINOPHEN [Suspect]
     Indication: SURGERY
     Dosage: 1 OR 2 TABS EVERY 4 HO ORAL
     Route: 048
     Dates: start: 20040227, end: 20040324
  3. PREMARIN [Concomitant]
  4. DIOVAN [Concomitant]

REACTIONS (2)
  - DYSPNOEA [None]
  - SOMNOLENCE [None]
